FAERS Safety Report 7467006-X (Version None)
Quarter: 2011Q2

REPORT INFORMATION
  Report Type: 
  Country: None (occurrence: None)
  Receive Date: 20110509
  Receipt Date: 20110504
  Transmission Date: 20111010
  Serious: Yes (Death)
  Sender: FDA-Public Use
  Company Number: BR-PFIZER INC-2011096169

PATIENT
  Age: 83 Year
  Sex: Male

DRUGS (1)
  1. GENOTROPIN [Suspect]
     Dosage: 2 MG, 7X/DAY
     Route: 058
     Dates: start: 20100420

REACTIONS (1)
  - DEATH [None]
